FAERS Safety Report 10420401 (Version 2)
Quarter: 2015Q2

REPORT INFORMATION
  Report Type: Spontaneous
  Country: US (occurrence: None)
  Receive Date: 20140828
  Receipt Date: 20150407
  Transmission Date: 20150821
  Serious: Yes (Other)
  Sender: FDA-Public Use
  Company Number: US-001006N

PATIENT
  Age: 85 Year
  Sex: Female

DRUGS (6)
  1. GATTEX [Suspect]
     Active Substance: TEDUGLUTIDE\WATER
     Indication: SHORT-BOWEL SYNDROME
     Route: 058
     Dates: start: 20140224
  2. LOMOTIL [Concomitant]
     Active Substance: ATROPINE SULFATE\DIPHENOXYLATE HYDROCHLORIDE
  3. VITAMIN B12 [Concomitant]
     Active Substance: CYANOCOBALAMIN
  4. LOPERAMIDE HCL [Concomitant]
     Active Substance: LOPERAMIDE HYDROCHLORIDE
  5. DIPHENOXYLATE/ATROPINE [Concomitant]
     Active Substance: ATROPINE\DIPHENOXYLATE
  6. VITAMINE D [Concomitant]

REACTIONS (9)
  - Wrong technique in drug usage process [None]
  - Ill-defined disorder [None]
  - Inadequate aseptic technique in use of product [None]
  - Joint swelling [None]
  - Diarrhoea [None]
  - Cystitis [None]
  - Product contamination [None]
  - Uterine cancer [None]
  - Fungal infection [None]

NARRATIVE: CASE EVENT DATE: 20140423
